FAERS Safety Report 5595707-7 (Version None)
Quarter: 2008Q1

REPORT INFORMATION
  Report Type: 
  Country: None (occurrence: None)
  Receive Date: 20080118
  Receipt Date: 20080111
  Transmission Date: 20080703
  Serious: Yes (Hospitalization)
  Sender: FDA-Public Use
  Company Number: US-AVENTIS-200718181US

PATIENT
  Age: 66 Year
  Sex: Female

DRUGS (10)
  1. LANTUS [Suspect]
     Dosage: DOSE QUANTITY: 60
     Dates: end: 20071101
  2. LANTUS [Suspect]
     Dates: start: 20071101
  3. OPTICLIK (INSULIN INJECTION PEN) [Suspect]
  4. METOPROLOL SUCCINATE EXTENDED RELEASE [Concomitant]
     Dosage: DOSE: UNK
  5. CIPRO [Concomitant]
     Dosage: DOSE: UNK
  6. BUMETANIDE [Concomitant]
     Dosage: DOSE: UNK
  7. POTASSIUM CHLORIDE [Concomitant]
     Dosage: DOSE: UNK
  8. DIGOXIN [Concomitant]
     Dosage: DOSE: UNK
  9. WARFARIN SODIUM [Concomitant]
     Dosage: DOSE: UNK
  10. LIPITOR [Concomitant]
     Dosage: DOSE: UNK

REACTIONS (7)
  - ANOREXIA [None]
  - ASTHENIA [None]
  - BLOOD GLUCOSE DECREASED [None]
  - BLOOD GLUCOSE INCREASED [None]
  - DYSPNOEA [None]
  - HEADACHE [None]
  - PNEUMONIA [None]
